FAERS Safety Report 16034790 (Version 5)
Quarter: 2020Q4

REPORT INFORMATION
  Report Type: Report from Study
  Country: None (occurrence: JP)
  Receive Date: 20190305
  Receipt Date: 20201216
  Transmission Date: 20210113
  Serious: Yes (Hospitalization)
  Sender: FDA-Public Use
  Company Number: JP-ABBVIE-19P-087-2691159-00

PATIENT
  Age: 45 Year
  Sex: Male
  Weight: 83.9 kg

DRUGS (6)
  1. OLMETEC [Concomitant]
     Active Substance: OLMESARTAN MEDOXOMIL
     Indication: HYPERTENSION
     Dosage: 20 MILLIGRAM
     Route: 065
  2. XYZAL [Concomitant]
     Active Substance: LEVOCETIRIZINE DIHYDROCHLORIDE
     Indication: COLD URTICARIA
     Dosage: 1 DOSAGE FORM
     Route: 065
  3. LOXONIN [Concomitant]
     Active Substance: LOXOPROFEN SODIUM
     Indication: BACK PAIN
     Dosage: 1 DOSAGE FORM
     Route: 065
  4. ONGLYZA [Concomitant]
     Active Substance: SAXAGLIPTIN HYDROCHLORIDE
     Indication: DIABETES MELLITUS
     Dosage: 5 MILLIGRAM
     Route: 065
  5. LEUPRORELIN [Suspect]
     Active Substance: LEUPROLIDE ACETATE
     Indication: BULBOSPINAL MUSCULAR ATROPHY CONGENITAL
     Dosage: 11.25 MILLIGRAM, Q3MONTHS
     Route: 058
     Dates: start: 20171214
  6. SUGLAT [Concomitant]
     Active Substance: IPRAGLIFLOZIN L-PROLINE
     Indication: DIABETES MELLITUS
     Dosage: 50 MILLIGRAM
     Route: 065

REACTIONS (4)
  - Spinal compression fracture [Not Recovered/Not Resolved]
  - Spinal compression fracture [Recovered/Resolved]
  - Ligament sprain [Recovered/Resolved]
  - Salivary gland neoplasm [Not Recovered/Not Resolved]

NARRATIVE: CASE EVENT DATE: 20180130
